FAERS Safety Report 19724890 (Version 1)
Quarter: 2021Q3

REPORT INFORMATION
  Report Type: Spontaneous
  Country: FR (occurrence: FR)
  Receive Date: 20210819
  Receipt Date: 20210819
  Transmission Date: 20211014
  Serious: Yes (Other)
  Sender: FDA-Public Use
  Company Number: FR-PFIZER INC-202101025427

PATIENT
  Age: 48 Year
  Sex: Male

DRUGS (7)
  1. OXAZEPAM. [Suspect]
     Active Substance: OXAZEPAM
     Dosage: UNK
  2. PREGABALIN. [Suspect]
     Active Substance: PREGABALIN
     Dosage: UNK
  3. CANNABIS [Suspect]
     Active Substance: CANNABIS SATIVA SUBSP. INDICA TOP
     Dosage: UNK
  4. CLONAZEPAM. [Suspect]
     Active Substance: CLONAZEPAM
     Dosage: UNK
  5. COCAINE [Suspect]
     Active Substance: COCAINE
     Dosage: UNK
  6. NORDIAZEPAM [Suspect]
     Active Substance: NORDAZEPAM
     Dosage: UNK
  7. BROMAZEPAM [Suspect]
     Active Substance: BROMAZEPAM
     Dosage: UNK

REACTIONS (3)
  - Somnolence [Recovered/Resolved]
  - Drug abuse [Unknown]
  - Disturbance in attention [Recovered/Resolved]
